FAERS Safety Report 20691583 (Version 2)
Quarter: 2022Q2

REPORT INFORMATION
  Report Type: Other
  Country: CA (occurrence: None)
  Receive Date: 20220408
  Receipt Date: 20220513
  Transmission Date: 20220720
  Serious: Yes (Other)
  Sender: FDA-Public Use
  Company Number: CA-ROCHE-3063991

PATIENT
  Age: 80 Year
  Sex: Female
  Weight: 92.2 kg

DRUGS (5)
  1. ACTEMRA [Suspect]
     Active Substance: TOCILIZUMAB
     Indication: Rheumatoid arthritis
     Dosage: DRUG DOSE FIRST ADMINISTERED IS 720 MG MILLIGRAM(S)
     Route: 042
     Dates: start: 20121213
  2. ACTEMRA [Suspect]
     Active Substance: TOCILIZUMAB
     Dosage: DRUG DOSE FIRST ADMINISTERED IS 300 MG MILLIGRAM(S)
     Route: 042
     Dates: start: 20130501, end: 2013
  3. ACTEMRA [Suspect]
     Active Substance: TOCILIZUMAB
     Dosage: DRUG DOSE FIRST ADMINISTERED IS 320 MG MILLIGRAM(S)
     Route: 042
     Dates: start: 20130828
  4. ACTEMRA [Suspect]
     Active Substance: TOCILIZUMAB
     Dosage: DRUG DOSE FIRST ADMINISTERED IS 720 MG MILLIGRAM(S)
     Route: 042
     Dates: start: 20140606
  5. PREDNISONE [Concomitant]
     Active Substance: PREDNISONE
     Dosage: 7-10 MG PO OD
     Route: 048

REACTIONS (1)
  - Soft tissue sarcoma [Unknown]

NARRATIVE: CASE EVENT DATE: 20220209
